FAERS Safety Report 7399348-0 (Version None)
Quarter: 2011Q1

REPORT INFORMATION
  Report Type: 
  Country: None (occurrence: None)
  Receive Date: 20110329
  Receipt Date: 20110318
  Transmission Date: 20110831
  Serious: Yes (Other)
  Sender: FDA-Public Use
  Company Number: ACO_22473_2011

PATIENT
  Age: 76 Year
  Sex: Male

DRUGS (9)
  1. PROVIGIL [Concomitant]
  2. ERGOCALCIFEROL [Concomitant]
  3. METHENAMINE (METHENAMINE) [Concomitant]
  4. TUMS /00108001/ (CALCIUM CARBONATE) [Concomitant]
  5. FAMOTIDINE [Concomitant]
  6. OXYTROL [Concomitant]
  7. AMPYRA [Suspect]
     Indication: PRODUCT USED FOR UNKNOWN INDICATION
     Dosage: 10 MG, BID, ORAL
     Route: 048
     Dates: start: 20100501, end: 20100521
  8. MULTIVITAMIN /00831701/ (VITAMINS NOS) [Concomitant]
  9. COUMADIN [Concomitant]

REACTIONS (7)
  - HEAD INJURY [None]
  - FALL [None]
  - INAPPROPRIATE SCHEDULE OF DRUG ADMINISTRATION [None]
  - CONVULSION [None]
  - ROAD TRAFFIC ACCIDENT [None]
  - MALAISE [None]
  - NAUSEA [None]
